FAERS Safety Report 5739956-3 (Version None)
Quarter: 2008Q2

REPORT INFORMATION
  Report Type: 
  Country: None (occurrence: None)
  Receive Date: 20080513
  Receipt Date: 20071114
  Transmission Date: 20081010
  Serious: Yes (Other)
  Sender: FDA-Public Use
  Company Number: 2007AP001079

PATIENT
  Age: 62 Year
  Sex: Male

DRUGS (7)
  1. APO-METFORMIN (METFORMIN HYDROCHLORIDE) [Suspect]
     Indication: DIABETES MELLITUS
     Dosage: 500 MG; QD PO, 500 MG; TAB; PO; QD
     Route: 048
     Dates: start: 20070109, end: 20071001
  2. APO-METFORMIN (METFORMIN HYDROCHLORIDE) [Suspect]
     Indication: DIABETES MELLITUS
     Dosage: 500 MG; QD PO, 500 MG; TAB; PO; QD
     Route: 048
     Dates: start: 20070109, end: 20071001
  3. HYDROCHLOROTHIAZIDE/TRIAMTERENE (HYDROCHLOROTHIAZIDE/TRIAMTERENE) [Suspect]
     Indication: DIURETIC THERAPY
     Dosage: 1 TAB; QD PO, 1 TAB; TAB; PO; QD
     Route: 048
     Dates: start: 20010305
  4. HYDROCHLOROTHIAZIDE/TRIAMTERENE (HYDROCHLOROTHIAZIDE/TRIAMTERENE) [Suspect]
     Indication: DIURETIC THERAPY
     Dosage: 1 TAB; QD PO, 1 TAB; TAB; PO; QD
     Route: 048
     Dates: start: 20010305
  5. LEVOTHYROXINE SODIUM [Concomitant]
  6. CANDESARTAN CILEXETIL (CANDESARTAN CILEXETIL) [Concomitant]
  7. ACETAMINOPHEN [Concomitant]

REACTIONS (3)
  - ANGIOEDEMA [None]
  - HYPERSENSITIVITY [None]
  - REACTION TO DRUG EXCIPIENTS [None]
